FAERS Safety Report 16759417 (Version 1)
Quarter: 2019Q3

REPORT INFORMATION
  Report Type: Spontaneous
  Country: US (occurrence: US)
  Receive Date: 20190830
  Receipt Date: 20190830
  Transmission Date: 20191005
  Serious: Yes (Other)
  Sender: FDA-Public Use
  Company Number: US-JNJFOC-20190824886

PATIENT
  Age: 41 Year
  Sex: Female
  Weight: 72.64 kg

DRUGS (12)
  1. MORPHINE [Concomitant]
     Active Substance: MORPHINE
  2. AMITRIPTYLINE [Concomitant]
     Active Substance: AMITRIPTYLINE
  3. HYDROCODONE [Concomitant]
     Active Substance: HYDROCODONE
  4. TREMFYA [Suspect]
     Active Substance: GUSELKUMAB
     Indication: PSORIASIS
     Route: 058
     Dates: start: 2019
  5. ZOLOFT [Concomitant]
     Active Substance: SERTRALINE HYDROCHLORIDE
  6. POTASSIUM [Concomitant]
     Active Substance: POTASSIUM
  7. TOPAMAX [Concomitant]
     Active Substance: TOPIRAMATE
  8. OMEPRAZOLE. [Concomitant]
     Active Substance: OMEPRAZOLE
  9. TIZANIDINE. [Concomitant]
     Active Substance: TIZANIDINE
  10. GABAPENTIN. [Concomitant]
     Active Substance: GABAPENTIN
  11. SOMA [Concomitant]
     Active Substance: CARISOPRODOL
  12. NAPROXEN. [Concomitant]
     Active Substance: NAPROXEN

REACTIONS (6)
  - Oral herpes [Not Recovered/Not Resolved]
  - Fungal infection [Not Recovered/Not Resolved]
  - Impetigo [Not Recovered/Not Resolved]
  - Onychomycosis [Not Recovered/Not Resolved]
  - Injection site mass [Recovered/Resolved]
  - Decreased appetite [Not Recovered/Not Resolved]

NARRATIVE: CASE EVENT DATE: 2019
